FAERS Safety Report 23919907 (Version 2)
Quarter: 2024Q2

REPORT INFORMATION
  Report Type: Spontaneous
  Country: US (occurrence: US)
  Receive Date: 20240530
  Receipt Date: 20240607
  Transmission Date: 20240715
  Serious: Yes (Other)
  Sender: FDA-Public Use
  Company Number: US-RADIUS HEALTH INC.-2024US003519

PATIENT
  Age: 74 Year
  Sex: Female

DRUGS (2)
  1. TYMLOS [Suspect]
     Active Substance: ABALOPARATIDE
     Indication: Product used for unknown indication
     Dosage: UNK
     Route: 065
  2. GABAPENTIN [Concomitant]
     Active Substance: GABAPENTIN
     Indication: Product used for unknown indication

REACTIONS (8)
  - Thrombosis [Unknown]
  - Pulmonary embolism [Unknown]
  - Coronary artery occlusion [Unknown]
  - Femur fracture [Recovering/Resolving]
  - Fall [Recovering/Resolving]
  - Gait disturbance [Unknown]
  - Hypersensitivity [Unknown]
  - Product dose omission issue [Unknown]

NARRATIVE: CASE EVENT DATE: 20230901
